FAERS Safety Report 8467509 (Version 5)
Quarter: 2013Q4

REPORT INFORMATION
  Report Type: Report from Study
  Country: FR (occurrence: FR)
  Receive Date: 20120320
  Receipt Date: 20131217
  Transmission Date: 20140711
  Serious: Yes (Hospitalization)
  Sender: FDA-Public Use
  Company Number: PHHO2012FR004470

PATIENT
  Sex: 0

DRUGS (2)
  1. TEGRETOL [Suspect]
     Dates: start: 201006
  2. FTY [Suspect]
     Indication: RELAPSING-REMITTING MULTIPLE SCLEROSIS
     Dosage: 0.5 MG, QD
     Route: 048
     Dates: start: 20111109

REACTIONS (1)
  - Trigeminal neuralgia [Recovered/Resolved]
